FAERS Safety Report 10718065 (Version 2)
Quarter: 2015Q1

REPORT INFORMATION
  Report Type: Spontaneous
  Country: US (occurrence: US)
  Receive Date: 20150117
  Receipt Date: 20150120
  Transmission Date: 20150721
  Serious: Yes (Death, Other)
  Sender: FDA-Public Use
  Company Number: US-JNJFOC-20150108859

PATIENT
  Age: 69 Year
  Sex: Male

DRUGS (4)
  1. ACETAMINOPHEN. [Suspect]
     Active Substance: ACETAMINOPHEN
     Route: 065
  2. AMLODIPINE [Suspect]
     Active Substance: AMLODIPINE BESYLATE
     Indication: PRODUCT USED FOR UNKNOWN INDICATION
     Route: 065
  3. ACETAMINOPHEN. [Suspect]
     Active Substance: ACETAMINOPHEN
     Indication: PRODUCT USED FOR UNKNOWN INDICATION
     Route: 065
  4. OXYCODONE [Suspect]
     Active Substance: OXYCODONE
     Indication: PRODUCT USED FOR UNKNOWN INDICATION
     Route: 065

REACTIONS (17)
  - Thrombocytopenia [Unknown]
  - Hypoglycaemia [Unknown]
  - Metabolic acidosis [Unknown]
  - Leukocytosis [Unknown]
  - Toxicity to various agents [Fatal]
  - Respiratory depression [Unknown]
  - Hypotension [Unknown]
  - Pneumonia aspiration [Unknown]
  - Coma [Unknown]
  - Coagulopathy [Unknown]
  - Acute kidney injury [Unknown]
  - Rapid eye movements sleep abnormal [Unknown]
  - Depressed level of consciousness [Unknown]
  - Tachycardia [Unknown]
  - Anion gap [Unknown]
  - Hepatotoxicity [Unknown]
  - Pancreatitis [Unknown]
